FAERS Safety Report 8856589 (Version 1)
Quarter: 2012Q4

REPORT INFORMATION
  Report Type: Spontaneous
  Country: US (occurrence: None)
  Receive Date: 20121019
  Receipt Date: 20121019
  Transmission Date: 20130627
  Serious: Yes (Hospitalization)
  Sender: FDA-Public Use
  Company Number: CLCY20120153

PATIENT
  Sex: Male

DRUGS (2)
  1. COLCRYS [Suspect]
     Indication: DRUG USE FOR UNKNOWN INDICATION
  2. SIMVASTATIN [Concomitant]

REACTIONS (1)
  - Dyspnoea [None]
